FAERS Safety Report 9174617 (Version 2)
Quarter: 2013Q2

REPORT INFORMATION
  Report Type: Spontaneous
  Country: US (occurrence: None)
  Receive Date: 20130313
  Receipt Date: 20130429
  Transmission Date: 20140414
  Serious: Yes (Other)
  Sender: FDA-Public Use
  Company Number: VAL_02211_2013

PATIENT
  Sex: Male

DRUGS (18)
  1. METOPROLOL [Suspect]
     Indication: PRODUCT USED FOR UNKNOWN INDICATION
  2. METOPROLOL [Suspect]
     Indication: PRODUCT USED FOR UNKNOWN INDICATION
  3. METOPROLOL [Suspect]
     Indication: MOOD ALTERED
  4. METOPROLOL [Suspect]
     Indication: PRODUCT USED FOR UNKNOWN INDICATION
  5. METOPROLOL [Suspect]
     Indication: BLOOD PRESSURE ABNORMAL
  6. METOPROLOL [Suspect]
     Indication: PRODUCT USED FOR UNKNOWN INDICATION
  7. EXELON [Suspect]
     Dates: start: 201110
  8. CITALOPRAM [Suspect]
     Indication: MOOD ALTERED
     Dosage: (NIGHTLY) (REGIMEN #1)
  9. CLONIDINE [Suspect]
     Indication: PRODUCT USED FOR UNKNOWN INDICATION
     Dosage: DF (REGIMEN #1)
  10. DILTIAZEM ER [Suspect]
     Indication: BLOOD PRESSURE ABNORMAL
     Dosage: DF (TWICE IN THE MORNING AND ONCE AT NIGHT (REGIMEN #1), (DF [ONE AT NIGHT (REGIMENT #2)])
  11. LASIX [Suspect]
     Indication: PRODUCT USED FOR UNKNOWN INDICATION
     Dosage: DF
  12. RANITIDINE [Concomitant]
  13. ICAPS [Concomitant]
  14. ASPIRIN [Concomitant]
  15. MELOXICAM [Concomitant]
  16. SIMVASTATIN [Concomitant]
  17. NAMENDA [Concomitant]
  18. LISINOPRIL HCTZ [Concomitant]

REACTIONS (5)
  - Body temperature increased [None]
  - Memory impairment [None]
  - Anger [None]
  - Somnolence [None]
  - Fatigue [None]
